FAERS Safety Report 26143041 (Version 1)
Quarter: 2025Q4

REPORT INFORMATION
  Report Type: Spontaneous
  Country: CN (occurrence: CN)
  Receive Date: 20251211
  Receipt Date: 20251211
  Transmission Date: 20260119
  Serious: Yes (Death)
  Sender: ROCHE
  Company Number: CN-ROCHE-10000455702

PATIENT

DRUGS (1)
  1. AVASTIN [Suspect]
     Active Substance: BEVACIZUMAB
     Indication: Gastrointestinal carcinoma

REACTIONS (2)
  - Infection [Fatal]
  - Septic shock [Fatal]
